FAERS Safety Report 18866943 (Version 2)
Quarter: 2021Q3

REPORT INFORMATION
  Report Type: Spontaneous
  Country: US (occurrence: US)
  Receive Date: 20210209
  Receipt Date: 20210919
  Transmission Date: 20211014
  Serious: No
  Sender: FDA-Public Use
  Company Number: US-SA-2021SA033006

PATIENT
  Age: 60 Year
  Sex: Male

DRUGS (1)
  1. CAPRELSA [Suspect]
     Active Substance: VANDETANIB
     Indication: THYROID CANCER
     Dosage: 300 MG, QD
     Route: 048
     Dates: start: 20190222

REACTIONS (4)
  - Dry skin [Unknown]
  - Diarrhoea [Unknown]
  - Intentional product use issue [Unknown]
  - Skin exfoliation [Unknown]
